FAERS Safety Report 5050533-2 (Version None)
Quarter: 2006Q3

REPORT INFORMATION
  Report Type: 
  Country: None (occurrence: None)
  Receive Date: 20060707
  Receipt Date: 20060629
  Transmission Date: 20061208
  Serious: Yes (Life-Threatening)
  Sender: FDA-Public Use
  Company Number: HQWYE490629JUN06

PATIENT
  Age: 70 Year
  Sex: Female

DRUGS (2)
  1. TRANGOREX                            (AMIODARONE) [Suspect]
     Indication: ATRIAL FIBRILLATION
     Dosage: 200 MG 1X PER 1 DAY
     Route: 048
     Dates: start: 20050202, end: 20060412
  2. TRANGOREX                            (AMIODARONE) [Suspect]
     Indication: ATRIAL FLUTTER
     Dosage: 200 MG 1X PER 1 DAY
     Route: 048
     Dates: start: 20050202, end: 20060412

REACTIONS (2)
  - SYNCOPE [None]
  - TORSADE DE POINTES [None]
